FAERS Safety Report 17886273 (Version 1)
Quarter: 2020Q2

REPORT INFORMATION
  Report Type: Report from Study
  Country: NL (occurrence: NL)
  Receive Date: 20200611
  Receipt Date: 20200611
  Transmission Date: 20200714
  Serious: Yes (Death, Hospitalization, Other)
  Sender: FDA-Public Use
  Company Number: NL-CELGENEUS-NLD-20200509074

PATIENT
  Age: 79 Year
  Sex: Male
  Weight: 93.7 kg

DRUGS (3)
  1. LENALIDOMIDE [Suspect]
     Active Substance: LENALIDOMIDE
     Indication: MANTLE CELL LYMPHOMA
     Dosage: 10 MILLIGRAM
     Route: 048
     Dates: start: 20190606, end: 20190626
  2. R CHOP [Concomitant]
     Active Substance: CYCLOPHOSPHAMIDE\DOXORUBICIN\PREDNISONE\RITUXIMAB\VINCRISTINE
     Indication: MANTLE CELL LYMPHOMA
     Route: 065
     Dates: start: 20171201, end: 20180430
  3. RITUXIMAB SC [Suspect]
     Active Substance: RITUXIMAB
     Indication: MANTLE CELL LYMPHOMA
     Dosage: 1400 MILLIGRAM
     Route: 058
     Dates: end: 20190606

REACTIONS (2)
  - Acute myeloid leukaemia [Fatal]
  - Urosepsis [Unknown]

NARRATIVE: CASE EVENT DATE: 20190815
